FAERS Safety Report 12056214 (Version 1)
Quarter: 2016Q1

REPORT INFORMATION
  Report Type: Spontaneous
  Country: US (occurrence: US)
  Receive Date: 20160209
  Receipt Date: 20160209
  Transmission Date: 20160526
  Serious: No
  Sender: FDA-Public Use
  Company Number: US-ABBVIE-15P-163-1471378-00

PATIENT
  Sex: Male

DRUGS (4)
  1. HUMIRA [Suspect]
     Active Substance: ADALIMUMAB
     Indication: PSORIASIS
     Route: 065
  2. COSENTYX [Suspect]
     Active Substance: SECUKINUMAB
     Indication: PSORIASIS
     Dosage: LOADING DOSES
     Route: 065
     Dates: start: 201506
  3. COSENTYX [Suspect]
     Active Substance: SECUKINUMAB
     Route: 065
  4. ENBREL [Suspect]
     Active Substance: ETANERCEPT
     Indication: PSORIASIS
     Route: 065

REACTIONS (5)
  - Drug effect incomplete [Unknown]
  - Psoriasis [Unknown]
  - Drug ineffective [Unknown]
  - Drug effect incomplete [Unknown]
  - Stress [Unknown]

NARRATIVE: CASE EVENT DATE: 2015
